FAERS Safety Report 9204995 (Version 1)
Quarter: 2013Q2

REPORT INFORMATION
  Report Type: Spontaneous
  Country: US (occurrence: None)
  Receive Date: 20130401
  Receipt Date: 20130401
  Transmission Date: 20140414
  Serious: No
  Sender: FDA-Public Use
  Company Number: None

PATIENT
  Age: 38 Year
  Sex: Male
  Weight: 72.58 kg

DRUGS (2)
  1. LUMIGAN [Suspect]
     Indication: OCULAR HYPERTENSION
     Dosage: ONE DROP FOR EACH EYE
     Dates: start: 20110101, end: 20130330
  2. LUMIGAN [Suspect]
     Indication: GLAUCOMA
     Dosage: ONE DROP FOR EACH EYE
     Dates: start: 20110101, end: 20130330

REACTIONS (3)
  - Ocular hyperaemia [None]
  - Growth of eyelashes [None]
  - Eye pruritus [None]
